FAERS Safety Report 6620013-9 (Version None)
Quarter: 2010Q1

REPORT INFORMATION
  Report Type: 
  Country: None (occurrence: None)
  Receive Date: 20100309
  Receipt Date: 20100304
  Transmission Date: 20100710
  Serious: Yes (Death)
  Sender: FDA-Public Use
  Company Number: ZA-BAYER-201018054GPV

PATIENT
  Age: 7 Month

DRUGS (1)
  1. CLOTRIMAZOLE [Suspect]
     Indication: ORAL CANDIDIASIS
     Dosage: TOTAL DAILY DOSE: 1 DF
     Route: 048

REACTIONS (1)
  - DRUG ADMINISTRATION ERROR [None]
